FAERS Safety Report 11499427 (Version 1)
Quarter: 2015Q3

REPORT INFORMATION
  Report Type: Spontaneous
  Country: US (occurrence: US)
  Receive Date: 20150914
  Receipt Date: 20150914
  Transmission Date: 20151125
  Serious: No
  Sender: FDA-Public Use
  Company Number: US-TEVA-550530USA

PATIENT
  Age: 69 Year
  Sex: Female

DRUGS (5)
  1. PROPRANOLOL [Concomitant]
     Active Substance: PROPRANOLOL\PROPRANOLOL HYDROCHLORIDE
     Indication: MIGRAINE
  2. PLAVIX [Concomitant]
     Active Substance: CLOPIDOGREL BISULFATE
     Dates: start: 2004
  3. EXCEDRIN [Concomitant]
     Active Substance: ACETAMINOPHEN\ASPIRIN\CAFFEINE
     Indication: MIGRAINE
  4. PANTOPRAZOLE [Suspect]
     Active Substance: PANTOPRAZOLE SODIUM
     Indication: GASTROOESOPHAGEAL REFLUX DISEASE
     Dosage: 40 MILLIGRAM DAILY;
     Route: 048
     Dates: start: 2013
  5. LISINOPRIL. [Concomitant]
     Active Substance: LISINOPRIL
     Indication: BLOOD PRESSURE ABNORMAL

REACTIONS (7)
  - Peripheral coldness [Recovered/Resolved]
  - Product physical issue [Unknown]
  - Dysgeusia [Unknown]
  - Glossodynia [Unknown]
  - Foreign body [Unknown]
  - Nervousness [Unknown]
  - Product colour issue [Unknown]

NARRATIVE: CASE EVENT DATE: 20150324
